FAERS Safety Report 5283770-2 (Version None)
Quarter: 2007Q2

REPORT INFORMATION
  Report Type: 
  Country: None (occurrence: None)
  Receive Date: 20070402
  Receipt Date: 20070322
  Transmission Date: 20071010
  Serious: Yes (Life-Threatening, Hospitalization, Other)
  Sender: FDA-Public Use
  Company Number: ES-GILEAD-2007-0011735

PATIENT
  Age: 40 Year
  Sex: Female
  Weight: 59 kg

DRUGS (4)
  1. VIREAD [Suspect]
     Route: 048
     Dates: start: 20040601, end: 20070115
  2. IBUPROFEN [Suspect]
     Route: 048
     Dates: start: 20061226, end: 20070115
  3. ZIAGEN [Concomitant]
     Route: 048
  4. KALETRA [Concomitant]
     Route: 048

REACTIONS (2)
  - DRUG INTERACTION [None]
  - RENAL FAILURE ACUTE [None]
